FAERS Safety Report 23919303 (Version 1)
Quarter: 2024Q2

REPORT INFORMATION
  Report Type: Spontaneous
  Country: FR (occurrence: FR)
  Receive Date: 20240530
  Receipt Date: 20240530
  Transmission Date: 20240716
  Serious: Yes (Life-Threatening, Hospitalization, Other)
  Sender: FDA-Public Use
  Company Number: FR-AFSSAPS-MP2024000795

PATIENT
  Age: 51 Year
  Sex: Male
  Weight: 64.5 kg

DRUGS (21)
  1. PEMETREXED [Suspect]
     Active Substance: PEMETREXED
     Indication: Lung adenocarcinoma
     Dosage: 935 MILLIGRAM
     Route: 042
     Dates: start: 20240411, end: 20240411
  2. KEYTRUDA [Suspect]
     Active Substance: PEMBROLIZUMAB
     Indication: Lung adenocarcinoma
     Dosage: 200 MILLIGRAM
     Route: 042
     Dates: start: 20240222, end: 20240222
  3. KEYTRUDA [Suspect]
     Active Substance: PEMBROLIZUMAB
     Dosage: 200 MILLIGRAM
     Route: 042
     Dates: start: 20240313, end: 20240313
  4. NALOXEGOL [Concomitant]
     Active Substance: NALOXEGOL
     Indication: Product used for unknown indication
     Dosage: 25 MILLIGRAM, ONCE A DAY
     Route: 048
  5. MOVICOL [Concomitant]
     Active Substance: POLYETHYLENE GLYCOL 3350\POTASSIUM CHLORIDE\SODIUM BICARBONATE\SODIUM CHLORIDE
     Indication: Product used for unknown indication
     Dosage: 1 DOSAGE FORM, ONCE A DAY
     Route: 048
  6. VENLAFAXINE HYDROCHLORIDE [Concomitant]
     Active Substance: VENLAFAXINE HYDROCHLORIDE
     Indication: Product used for unknown indication
     Dosage: 225 MILLIGRAM, ONCE A DAY (75 MG; 3 TEASPOONS IN THE MORNING)
     Route: 048
  7. KARDEGIC [Concomitant]
     Active Substance: ASPIRIN DL-LYSINE
     Indication: Product used for unknown indication
     Dosage: 100 MILLIGRAM, ONCE A DAY
     Route: 048
  8. INDAPAMIDE\PERINDOPRIL [Concomitant]
     Active Substance: INDAPAMIDE\PERINDOPRIL
     Indication: Product used for unknown indication
     Dosage: 225 MILLIGRAM, ONCE A DAY (75 MG; 3 TEASPOONS IN THE MORNING)
     Route: 048
  9. CARBOPLATIN [Concomitant]
     Active Substance: CARBOPLATIN
     Indication: Lung adenocarcinoma
     Dosage: 374.25 MILLIGRAM
     Route: 042
     Dates: start: 20240201, end: 20240201
  10. CARBOPLATIN [Concomitant]
     Active Substance: CARBOPLATIN
     Dosage: 417.35 MILLIGRAM
     Route: 042
     Dates: start: 20240222, end: 20240222
  11. CARBOPLATIN [Concomitant]
     Active Substance: CARBOPLATIN
     Dosage: 442.25 MILLIGRAM
     Route: 042
     Dates: start: 20240313, end: 20240313
  12. VALPROATE SODIUM [Concomitant]
     Active Substance: VALPROATE SODIUM
     Indication: Product used for unknown indication
     Dosage: 1000 MILLIGRAM, ONCE A DAY (500 MG 2 TABS MORNING AND EVENING)
     Route: 048
  13. ALPRAZOLAM [Concomitant]
     Active Substance: ALPRAZOLAM
     Indication: Product used for unknown indication
     Dosage: 1 MILLIGRAM, ONCE A DAY (0.5 MG MORNING AND EVENING)
     Route: 048
  14. ONDANSETRON [Concomitant]
     Active Substance: ONDANSETRON
     Indication: Product used for unknown indication
     Dosage: 16 MILLIGRAM, ONCE A DAY (8 MG MORNING AND EVENING)
     Route: 048
  15. ATORVASTATIN [Concomitant]
     Active Substance: ATORVASTATIN
     Indication: Product used for unknown indication
     Dosage: 80 MILLIGRAM, ONCE A DAY (40 MG 2 TABS IN THE EVENING)
     Route: 048
  16. SKENAN [Concomitant]
     Active Substance: MORPHINE SULFATE
     Indication: Product used for unknown indication
     Dosage: 40 MILLIGRAM, ONCE A DAY (20 MG MORNING AND EVENING)
     Route: 048
  17. NICOPATCH [Concomitant]
     Active Substance: NICOTINE
     Indication: Product used for unknown indication
     Dosage: 1 DOSAGE FORM, ONCE A DAY (21MG/24H)
     Route: 062
  18. MORPHINE SULFATE [Concomitant]
     Active Substance: MORPHINE SULFATE
     Indication: Product used for unknown indication
     Dosage: 1 DOSAGE FORM, ONCE A DAY (IF NECESSARY EVERY 4 HOURS)
     Route: 048
  19. PACLITAXEL [Concomitant]
     Active Substance: PACLITAXEL
     Indication: Lung adenocarcinoma
     Dosage: 382 MILLIGRAM
     Route: 042
     Dates: start: 20240222, end: 20240222
  20. PACLITAXEL [Concomitant]
     Active Substance: PACLITAXEL
     Dosage: 307.2 MILLIGRAM
     Route: 042
     Dates: start: 20240313, end: 20240313
  21. VERAPAMIL HYDROCHLORIDE [Concomitant]
     Active Substance: VERAPAMIL HYDROCHLORIDE
     Indication: Product used for unknown indication
     Dosage: 120 MILLIGRAM, ONCE A DAY (MORNING)
     Route: 048

REACTIONS (2)
  - Haemophagocytic lymphohistiocytosis [Recovering/Resolving]
  - Rash [Recovering/Resolving]

NARRATIVE: CASE EVENT DATE: 20240423
